FAERS Safety Report 13263828 (Version 1)
Quarter: 2017Q1

REPORT INFORMATION
  Report Type: Spontaneous
  Country: US (occurrence: US)
  Receive Date: 20170222
  Receipt Date: 20170222
  Transmission Date: 20170428
  Serious: Yes (Other)
  Sender: FDA-Public Use
  Company Number: None

PATIENT
  Age: 21 Year
  Sex: Female
  Weight: 42 kg

DRUGS (1)
  1. SUBOXONE [Suspect]
     Active Substance: BUPRENORPHINE HYDROCHLORIDE\NALOXONE HYDROCHLORIDE
     Indication: PRODUCT USE ISSUE
     Dates: start: 20170214, end: 20170220

REACTIONS (6)
  - Nausea [None]
  - Muscle spasms [None]
  - Fatigue [None]
  - Vomiting [None]
  - Malaise [None]
  - Drug abuse [None]

NARRATIVE: CASE EVENT DATE: 20170220
